FAERS Safety Report 17348860 (Version 1)
Quarter: 2020Q1

REPORT INFORMATION
  Report Type: Spontaneous
  Country: US (occurrence: US)
  Receive Date: 20200129
  Receipt Date: 20200129
  Transmission Date: 20200409
  Serious: Yes (Disabling, Other)
  Sender: FDA-Public Use
  Company Number: None

PATIENT
  Age: 53 Year
  Sex: Female
  Weight: 54.9 kg

DRUGS (13)
  1. ESTROGEN [Concomitant]
     Active Substance: ESTROGENS
  2. DALFAMPRIDINE. [Concomitant]
     Active Substance: DALFAMPRIDINE
  3. MVI FOR EYES [Concomitant]
  4. MODAFINIL. [Concomitant]
     Active Substance: MODAFINIL
  5. OSELTAMIVIR PHOSPHATE. [Suspect]
     Active Substance: OSELTAMIVIR PHOSPHATE
     Indication: INFLUENZA
     Dosage: ?          QUANTITY:10 CAPSULE(S);?
     Route: 048
  6. PROGESTERONE. [Concomitant]
     Active Substance: PROGESTERONE
  7. IBUPROFEN. [Concomitant]
     Active Substance: IBUPROFEN
  8. MAVENCLAD [Concomitant]
     Active Substance: CLADRIBINE
  9. TESTOSTERONE. [Concomitant]
     Active Substance: TESTOSTERONE
  10. ALPRAZOLAM. [Concomitant]
     Active Substance: ALPRAZOLAM
  11. DAY QUIL [Concomitant]
  12. VITAMIN B COMPLEX [Concomitant]
     Active Substance: CYANOCOBALAMIN\DEXPANTHENOL\NIACINAMIDE\PYRIDOXINE HYDROCHLORIDE\RIBOFLAVIN 5^-PHOSPHATE SODIUM\THIAMINE HYDROCHLORIDE\VITAMIN B COMPLEX
  13. VIT D [Concomitant]
     Active Substance: VITAMIN D NOS

REACTIONS (8)
  - Delirium [None]
  - Paranoia [None]
  - Insomnia [None]
  - Parasomnia [None]
  - Anxiety [None]
  - Sleep deficit [None]
  - Panic attack [None]
  - Hallucination, visual [None]

NARRATIVE: CASE EVENT DATE: 20200114
